FAERS Safety Report 18207430 (Version 1)
Quarter: 2020Q3

REPORT INFORMATION
  Report Type: Spontaneous
  Country: IN (occurrence: IN)
  Receive Date: 20200828
  Receipt Date: 20200828
  Transmission Date: 20201103
  Serious: Yes (Other)
  Sender: FDA-Public Use
  Company Number: IN-MEDEXUS PHARMA, INC.-2020MED00249

PATIENT
  Age: 41 Year
  Sex: Male

DRUGS (9)
  1. VINCRISTINE [Concomitant]
     Active Substance: VINCRISTINE
     Route: 065
  2. METHOTREXATE. [Suspect]
     Active Substance: METHOTREXATE
     Dosage: 3 G/M2 OVER 24 HOURS (STARTED ON DAY 10)
     Route: 065
  3. ETOPOSIDE. [Concomitant]
     Active Substance: ETOPOSIDE
     Route: 065
  4. DOXORUBICIN [Concomitant]
     Active Substance: DOXORUBICIN
     Route: 065
  5. IFOSFAMIDE. [Concomitant]
     Active Substance: IFOSFAMIDE
     Route: 065
  6. CYTARABINE. [Concomitant]
     Active Substance: CYTARABINE
     Route: 065
  7. METHOTREXATE. [Suspect]
     Active Substance: METHOTREXATE
     Indication: BURKITT^S LYMPHOMA STAGE III
     Dosage: UNK
     Route: 065
  8. METHOTREXATE. [Suspect]
     Active Substance: METHOTREXATE
     Dosage: 1.5 G/M2 OVER 24 HOURS
     Route: 065
  9. CYCLOPHOSPHAMIDE. [Concomitant]
     Active Substance: CYCLOPHOSPHAMIDE
     Route: 065

REACTIONS (1)
  - Palmar-plantar erythrodysaesthesia syndrome [Recovered/Resolved]
